FAERS Safety Report 4869123-7 (Version None)
Quarter: 2005Q4

REPORT INFORMATION
  Report Type: 
  Country: None (occurrence: None)
  Receive Date: 20051230
  Receipt Date: 20051221
  Transmission Date: 20060501
  Serious: Yes (Other)
  Sender: FDA-Public Use
  Company Number: CA-JNJFOC-20051205402

PATIENT
  Sex: Male

DRUGS (2)
  1. REMICADE [Suspect]
     Dosage: (0, 2. AND 6 WEEKS)
     Route: 042
  2. REMICADE [Suspect]
     Indication: CROHN'S DISEASE
     Dosage: PT RECEIVED 3 DOSES IN 2000
     Route: 042

REACTIONS (2)
  - SENSORY DISTURBANCE [None]
  - SENSORY LOSS [None]
